FAERS Safety Report 23816051 (Version 1)
Quarter: 2024Q2

REPORT INFORMATION
  Report Type: Spontaneous
  Country: US (occurrence: None)
  Receive Date: 20240502
  Receipt Date: 20240502
  Transmission Date: 20240716
  Serious: Yes (Other)
  Sender: FDA-Public Use
  Company Number: None

PATIENT
  Sex: Male

DRUGS (1)
  1. SUBLOCADE [Suspect]
     Active Substance: BUPRENORPHINE
     Indication: Dependence
     Dosage: OTHER ROUTE : INJECTED INTO ABDURHMAN;?
     Route: 050
     Dates: start: 20231005

REACTIONS (9)
  - Weight decreased [None]
  - Memory impairment [None]
  - Confusional state [None]
  - Gastrointestinal disorder [None]
  - Blood potassium increased [None]
  - Muscle spasms [None]
  - Dyspnoea [None]
  - Vomiting [None]
  - Urinary tract disorder [None]
